FAERS Safety Report 13535738 (Version 1)
Quarter: 2017Q2

REPORT INFORMATION
  Report Type: Spontaneous
  Country: GB (occurrence: GB)
  Receive Date: 20170511
  Receipt Date: 20170511
  Transmission Date: 20170830
  Serious: Yes (Other)
  Sender: FDA-Public Use
  Company Number: DE-ASTRAZENECA-2017SE46968

PATIENT
  Sex: Female

DRUGS (4)
  1. BENDROFLUMETHIAZIDE [Concomitant]
     Active Substance: BENDROFLUMETHIAZIDE
  2. FORXIGA [Suspect]
     Active Substance: DAPAGLIFLOZIN
     Route: 048
  3. METFORMIN [Concomitant]
     Active Substance: METFORMIN HYDROCHLORIDE
  4. SAXAGLIPTIN [Concomitant]
     Active Substance: SAXAGLIPTIN

REACTIONS (3)
  - Rash pruritic [Recovering/Resolving]
  - Hyperhidrosis [Recovering/Resolving]
  - Pollakiuria [Recovering/Resolving]
